FAERS Safety Report 24703523 (Version 2)
Quarter: 2025Q2

REPORT INFORMATION
  Report Type: Spontaneous
  Country: FR (occurrence: FR)
  Receive Date: 20241205
  Receipt Date: 20250523
  Transmission Date: 20250716
  Serious: Yes (Hospitalization)
  Sender: ABBVIE
  Company Number: FR-ABBVIE-6030299

PATIENT
  Age: 74 Year
  Sex: Female
  Weight: 62 kg

DRUGS (5)
  1. BOTOX [Suspect]
     Active Substance: ONABOTULINUMTOXINA
     Indication: Salivary hypersecretion
     Route: 030
     Dates: start: 20241010, end: 20241010
  2. BOTOX [Suspect]
     Active Substance: ONABOTULINUMTOXINA
     Indication: Salivary hypersecretion
     Route: 030
     Dates: start: 202410, end: 202410
  3. BOTOX [Suspect]
     Active Substance: ONABOTULINUMTOXINA
     Indication: Salivary hypersecretion
     Route: 030
     Dates: start: 20241010, end: 20241010
  4. BOTOX [Suspect]
     Active Substance: ONABOTULINUMTOXINA
     Indication: Salivary hypersecretion
     Route: 030
     Dates: start: 20241010, end: 20241010
  5. BOTOX [Suspect]
     Active Substance: ONABOTULINUMTOXINA
     Indication: Salivary hypersecretion
     Route: 030
     Dates: start: 20241010, end: 20241010

REACTIONS (9)
  - Neuromuscular toxicity [Recovered/Resolved]
  - Lung disorder [Unknown]
  - Dyspnoea [Not Recovered/Not Resolved]
  - Dysphagia [Unknown]
  - Dysphagia [Recovered/Resolved]
  - Rales [Unknown]
  - Pulmonary congestion [Unknown]
  - Gastrointestinal disorder [Unknown]
  - Dysphagia [Recovered/Resolved]

NARRATIVE: CASE EVENT DATE: 20240101
